FAERS Safety Report 24703908 (Version 1)
Quarter: 2024Q4

REPORT INFORMATION
  Report Type: Other
  Country: FR (occurrence: FR)
  Receive Date: 20241206
  Receipt Date: 20241206
  Transmission Date: 20250114
  Serious: Yes (Hospitalization)
  Sender: ZYDUS PHARM
  Company Number: None

PATIENT

DRUGS (2)
  1. IRBESARTAN [Suspect]
     Active Substance: IRBESARTAN
     Indication: Hypertension
     Dosage: 300 MILLIGRAM, QD
     Route: 048
  2. CLOPIDOGREL [Suspect]
     Active Substance: CLOPIDOGREL BISULFATE
     Indication: Acute coronary syndrome
     Dosage: 75 MILLIGRAM 1 TOTAL
     Route: 048
     Dates: start: 20241019, end: 20241019

REACTIONS (2)
  - Pruritus [Unknown]
  - Angioedema [Unknown]

NARRATIVE: CASE EVENT DATE: 20241019
